FAERS Safety Report 15539182 (Version 3)
Quarter: 2018Q4

REPORT INFORMATION
  Report Type: Report from Study
  Country: US (occurrence: US)
  Receive Date: 20181022
  Receipt Date: 20181207
  Transmission Date: 20190205
  Serious: Yes (Hospitalization)
  Sender: FDA-Public Use
  Company Number: US-ACTELION-A-US2018-180553

PATIENT
  Age: 43 Year
  Sex: Male
  Weight: 58.96 kg

DRUGS (8)
  1. WARFARIN [Concomitant]
     Active Substance: WARFARIN
  2. OPSUMIT [Suspect]
     Active Substance: MACITENTAN
     Indication: PULMONARY ARTERIAL HYPERTENSION
     Dosage: 10 MG, QD
     Route: 048
  3. PAROXETINE. [Concomitant]
     Active Substance: PAROXETINE
     Dosage: 10 MG, QD
  4. UPTRAVI [Suspect]
     Active Substance: SELEXIPAG
     Indication: PULMONARY ARTERIAL HYPERTENSION
     Dosage: 1400 MCG, BID
     Route: 048
  5. SILDENAFIL. [Concomitant]
     Active Substance: SILDENAFIL
     Dosage: 10 MG, TID
  6. AMIODARONE [Concomitant]
     Active Substance: AMIODARONE
     Dosage: 200 MG, QD
     Route: 048
  7. MELATONIN [Concomitant]
     Active Substance: MELATONIN
     Dosage: 5 MG, QD
  8. MIDODRINE [Concomitant]
     Active Substance: MIDODRINE
     Dosage: 15 MG, Q8HRS

REACTIONS (9)
  - Cor pulmonale [Recovering/Resolving]
  - Adrenal insufficiency [Recovering/Resolving]
  - End stage renal disease [Recovering/Resolving]
  - Multiple fractures [Recovering/Resolving]
  - Atrial fibrillation [Recovering/Resolving]
  - Road traffic accident [Recovering/Resolving]
  - Haemodialysis [Recovering/Resolving]
  - Pulmonary hypertension [Recovering/Resolving]
  - Respiratory failure [Recovering/Resolving]

NARRATIVE: CASE EVENT DATE: 20180724
